FAERS Safety Report 13613972 (Version 2)
Quarter: 2017Q2

REPORT INFORMATION
  Report Type: Report from Study
  Country: CA (occurrence: CA)
  Receive Date: 20170606
  Receipt Date: 20170612
  Transmission Date: 20170830
  Serious: Yes (Other)
  Sender: FDA-Public Use
  Company Number: PHHO2017CA008774

PATIENT
  Age: 76 Year
  Sex: Female
  Weight: 64.3 kg

DRUGS (1)
  1. LDK378 [Suspect]
     Active Substance: CERITINIB
     Indication: NON-SMALL CELL LUNG CANCER
     Dosage: 300 MG, UNK
     Route: 048
     Dates: start: 20160623

REACTIONS (2)
  - Second primary malignancy [Not Recovered/Not Resolved]
  - Desmoplastic melanoma [Not Recovered/Not Resolved]

NARRATIVE: CASE EVENT DATE: 20170508
